FAERS Safety Report 19991014 (Version 1)
Quarter: 2021Q4

REPORT INFORMATION
  Report Type: Spontaneous
  Country: US (occurrence: US)
  Receive Date: 20211025
  Receipt Date: 20211025
  Transmission Date: 20220303
  Serious: Yes (Hospitalization)
  Sender: FDA-Public Use
  Company Number: US-ELI_LILLY_AND_COMPANY-US202110006161

PATIENT
  Sex: Female

DRUGS (2)
  1. HUMALOG MIX75/25 [Suspect]
     Active Substance: INSULIN LISPRO
     Indication: Type 2 diabetes mellitus
     Dosage: 15 U, TID
     Route: 058
  2. HUMALOG MIX75/25 [Suspect]
     Active Substance: INSULIN LISPRO
     Dosage: 15 U, QID
     Route: 058

REACTIONS (6)
  - Sciatica [Recovering/Resolving]
  - Blood glucose increased [Unknown]
  - Hypokinesia [Unknown]
  - Dry mouth [Unknown]
  - Hyperhidrosis [Unknown]
  - Blood glucose decreased [Unknown]
